FAERS Safety Report 7414161 (Version 3)
Quarter: 2013Q4

REPORT INFORMATION
  Report Type: Spontaneous
  Country: TR (occurrence: TR)
  Receive Date: 20100609
  Receipt Date: 20131002
  Transmission Date: 20140711
  Serious: Yes (Hospitalization, Disabling)
  Sender: FDA-Public Use
  Company Number: TR-SANOFI-AVENTIS-2010SA031166

PATIENT
  Age: 72 Year
  Sex: Male

DRUGS (15)
  1. LEFLUNOMIDE [Suspect]
     Indication: RHEUMATOID ARTHRITIS
     Route: 048
     Dates: start: 2005
  2. LEFLUNOMIDE [Suspect]
     Indication: RHEUMATOID ARTHRITIS
     Route: 048
     Dates: start: 200704, end: 201002
  3. SULFASALAZINE [Concomitant]
     Indication: RHEUMATOID ARTHRITIS
     Route: 048
     Dates: start: 200506
  4. SULFASALAZINE [Concomitant]
     Indication: RHEUMATOID ARTHRITIS
  5. METHYLPREDNISOLONE [Concomitant]
     Indication: RHEUMATOID ARTHRITIS
     Route: 048
     Dates: start: 200506
  6. CALCIUM/VITAMIN D [Concomitant]
     Indication: OSTEOPOROSIS PROPHYLAXIS
     Dates: start: 200506
  7. METHOTREXATE [Concomitant]
     Indication: RHEUMATOID ARTHRITIS
     Dates: start: 2005
  8. METHOTREXATE [Concomitant]
     Indication: RHEUMATOID ARTHRITIS
  9. METHOTREXATE [Concomitant]
     Indication: RHEUMATOID ARTHRITIS
  10. PREDNISOLONE [Concomitant]
     Indication: RHEUMATOID ARTHRITIS
  11. PREDNISOLONE [Concomitant]
     Indication: RHEUMATOID ARTHRITIS
  12. PREDNISOLONE [Concomitant]
     Indication: RHEUMATOID ARTHRITIS
     Dosage: 2.5-5 MG
  13. PREDNISOLONE [Concomitant]
     Indication: RHEUMATOID ARTHRITIS
  14. NSAID^S [Concomitant]
     Indication: RHEUMATOID ARTHRITIS
  15. HYDROXYCHLOROQUINE [Concomitant]
     Dates: start: 200704

REACTIONS (7)
  - Peroneal nerve palsy [Recovered/Resolved]
  - Rheumatoid vasculitis [Unknown]
  - Neuropathy peripheral [Unknown]
  - Neuralgia [Recovered/Resolved]
  - Muscular weakness [Recovered/Resolved]
  - Hyporeflexia [Unknown]
  - Hypoaesthesia [Recovered/Resolved with Sequelae]
